FAERS Safety Report 7575593-6 (Version None)
Quarter: 2011Q2

REPORT INFORMATION
  Report Type: 
  Country: None (occurrence: None)
  Receive Date: 20110627
  Receipt Date: 20110617
  Transmission Date: 20111010
  Serious: Yes (Other)
  Sender: FDA-Public Use
  Company Number: PHHY2011US55823

PATIENT
  Age: 14 Year
  Sex: Male

DRUGS (3)
  1. HYDROMORPHONE HCL [Suspect]
     Dosage: 300 MG/H, UNK
  2. METHADONE HCL [Suspect]
     Indication: PAIN
     Dosage: 140 MG DAILY
     Route: 042
  3. LORAZEPAM [Concomitant]

REACTIONS (1)
  - HYPERAESTHESIA [None]
